FAERS Safety Report 8272949-3 (Version None)
Quarter: 2012Q2

REPORT INFORMATION
  Report Type: 
  Country: None (occurrence: None)
  Receive Date: 20120411
  Receipt Date: 20120323
  Transmission Date: 20120825
  Serious: Yes (Hospitalization)
  Sender: FDA-Public Use
  Company Number: US-BAYER-2012-027098

PATIENT
  Age: 17 Year
  Sex: Female

DRUGS (7)
  1. ALBUTEROL [Concomitant]
     Dosage: UNK
     Route: 048
     Dates: start: 20081006
  2. PRILOSEC [Concomitant]
     Route: 048
  3. COMPAZINE [Concomitant]
     Indication: NAUSEA
     Dosage: UNK UNK, PRN
     Dates: start: 20081128
  4. SYNTHROID [Concomitant]
     Dosage: LONG TERM
     Route: 048
  5. VICODIN [Concomitant]
     Indication: PAIN
     Dosage: UNK UNK, PRN
     Dates: start: 20081128
  6. YAZ [Suspect]
     Dosage: UNK
     Dates: start: 20070101, end: 20090101
  7. ADVAIR DISKUS 100/50 [Concomitant]
     Dosage: UNK
     Route: 048
     Dates: start: 20081006

REACTIONS (10)
  - CHOLECYSTITIS CHRONIC [None]
  - SCAR [None]
  - FLATULENCE [None]
  - ABDOMINAL DISTENSION [None]
  - CONSTIPATION [None]
  - DYSPEPSIA [None]
  - DIARRHOEA [None]
  - ANXIETY [None]
  - DEPRESSION [None]
  - CHOLECYSTECTOMY [None]
